FAERS Safety Report 12574355 (Version 1)
Quarter: 2016Q3

REPORT INFORMATION
  Report Type: Spontaneous
  Country: US (occurrence: None)
  Receive Date: 20160719
  Receipt Date: 20160719
  Transmission Date: 20161109
  Serious: Yes (Hospitalization)
  Sender: FDA-Public Use
  Company Number: None

PATIENT
  Age: 62 Year
  Sex: Female
  Weight: 55.3 kg

DRUGS (1)
  1. LYNPARZA [Suspect]
     Active Substance: OLAPARIB
     Indication: METASTASES TO BONE
     Route: 048
     Dates: start: 20160413, end: 20160429

REACTIONS (7)
  - Transaminases increased [None]
  - Arthralgia [None]
  - Myalgia [None]
  - Decreased appetite [None]
  - Abdominal discomfort [None]
  - Abdominal distension [None]
  - Drug-induced liver injury [None]

NARRATIVE: CASE EVENT DATE: 20160429
